FAERS Safety Report 19185502 (Version 1)
Quarter: 2021Q2

REPORT INFORMATION
  Report Type: Spontaneous
  Country: US (occurrence: US)
  Receive Date: 20210427
  Receipt Date: 20210427
  Transmission Date: 20210717
  Serious: No
  Sender: FDA-Public Use
  Company Number: US-PFIZER INC-2021418146

PATIENT
  Age: 74 Year
  Sex: Female

DRUGS (2)
  1. IBRANCE [Suspect]
     Active Substance: PALBOCICLIB
     Indication: BREAST CANCER METASTATIC
     Dosage: 100 MG
  2. LETROZOLE. [Suspect]
     Active Substance: LETROZOLE
     Dosage: UNK

REACTIONS (9)
  - Fluid retention [Unknown]
  - Renal disorder [Unknown]
  - Lymphoedema [Unknown]
  - Abdominal distension [Unknown]
  - Discomfort [Unknown]
  - Weight increased [Unknown]
  - Appetite disorder [Unknown]
  - Glossodynia [Unknown]
  - Swelling [Unknown]
